FAERS Safety Report 6625389-4 (Version None)
Quarter: 2010Q1

REPORT INFORMATION
  Report Type: 
  Country: None (occurrence: None)
  Receive Date: 20100310
  Receipt Date: 20090825
  Transmission Date: 20100710
  Serious: No
  Sender: FDA-Public Use
  Company Number: US-BIOGENIDEC-2009BI026844

PATIENT
  Age: 35 Year
  Sex: Female

DRUGS (1)
  1. AVONEX [Suspect]
     Indication: MULTIPLE SCLEROSIS
     Route: 030
     Dates: start: 20080301

REACTIONS (6)
  - ERYTHEMA [None]
  - RASH ERYTHEMATOUS [None]
  - RASH PAPULAR [None]
  - ROSACEA [None]
  - SKIN LESION [None]
  - SKIN WRINKLING [None]
